FAERS Safety Report 9252561 (Version 2)
Quarter: 2013Q4

REPORT INFORMATION
  Report Type: Report from Study
  Country: US (occurrence: US)
  Receive Date: 20130424
  Receipt Date: 20131106
  Transmission Date: 20140711
  Serious: Yes (Death, Hospitalization, Other)
  Sender: FDA-Public Use
  Company Number: US-BRISTOL-MYERS SQUIBB COMPANY-16860058

PATIENT
  Age: 12 Year
  Sex: Female

DRUGS (39)
  1. VANCOMYCIN [Concomitant]
     Dosage: 1DF:500MG/10ML. EVERY 6 HR.
     Route: 042
     Dates: start: 20120726
  2. ACETAMINOPHEN IV [Concomitant]
     Dosage: 1DF:650MG/65ML.; 500MG/50ML. ORAL(500MG/1TAB EVERY 4 HRS PRN).
     Route: 042
  3. FUROSEMIDE [Concomitant]
     Dosage: 1DF:20MG/2ML.EVRY 12 HRS.40MG/4ML 2TIMES/DAY. 04AUG12.?40MG/4ML ONCE DAILY. 04AUG12-04AUG12.
     Route: 042
     Dates: start: 20120806
  4. MAGNESIUM [Concomitant]
     Dosage: 1TAB.
     Route: 048
     Dates: start: 20120728
  5. MELATONIN [Concomitant]
     Dosage: 5TAB AT BED TIME.
     Route: 048
  6. METHYLPREDNISOLONE [Concomitant]
     Dosage: 37MG/0.59ML.
     Route: 042
     Dates: start: 20120801, end: 20120812
  7. METRONIDAZOLE [Concomitant]
     Dosage: 1TAB.
     Route: 048
     Dates: start: 20120727
  8. ALBUMIN [Concomitant]
     Dosage: 1DF:25GM/100ML.
     Route: 042
     Dates: start: 20120805, end: 20120805
  9. CALCIUM CARBONATE [Concomitant]
     Dosage: 1TABS.
     Route: 048
     Dates: start: 20120728
  10. CEFTAZIDIME [Concomitant]
     Dosage: 1DF:200MG/20ML, EVERY 12 HRS.
     Route: 042
  11. CHLORHEXIDINE [Concomitant]
  12. PERIDEX [Concomitant]
     Dates: start: 20120802
  13. HALDOL [Concomitant]
     Dates: start: 20120817, end: 20120818
  14. RISPERDAL [Concomitant]
     Dates: start: 20120821, end: 20120827
  15. DASATINIB [Suspect]
     Indication: ACUTE LYMPHOCYTIC LEUKAEMIA
     Dosage: INT 12AUG12?30-30NOV12-41.7MG
     Route: 048
     Dates: start: 20120730
  16. ETOPOSIDE [Suspect]
     Indication: ACUTE LYMPHOCYTIC LEUKAEMIA
     Dosage: INT 24DEC12
     Route: 042
     Dates: start: 20121222
  17. DOXORUBICIN [Suspect]
     Indication: ACUTE LYMPHOCYTIC LEUKAEMIA
     Route: 042
     Dates: start: 20120730, end: 20120806
  18. CYCLOPHOSPHAMIDE [Suspect]
     Indication: ACUTE LYMPHOCYTIC LEUKAEMIA
     Route: 042
     Dates: start: 20121005
  19. CYTARABINE [Suspect]
     Indication: ACUTE LYMPHOCYTIC LEUKAEMIA
     Dosage: 2-5OCT12-98MG?19-21DEC12-4G/M2?19-21DEC12-556MG
     Route: 042
     Dates: start: 20121002, end: 20121221
  20. VINCRISTINE [Suspect]
     Dosage: 1DF:2MG/2ML. EVERY 7DAYS.
     Route: 042
     Dates: start: 20120723, end: 20120806
  21. DAUNORUBICIN [Suspect]
     Dosage: 23JUL12-06AUG12 ,1DF:40MG/8ML. EVERY 7DAYS DURATION 3 DOSES.?417MG IV:30NV12-30NV12
     Route: 042
     Dates: start: 20120723
  22. PEGASPARGASE [Suspect]
     Indication: ACUTE LYMPHOCYTIC LEUKAEMIA
     Dosage: 1DF=3475 UNITS
     Route: 042
     Dates: start: 20121224, end: 20121224
  23. DEXAMETHASONE [Suspect]
     Indication: ACUTE LYMPHOCYTIC LEUKAEMIA
     Route: 048
     Dates: start: 20121127, end: 20121224
  24. NALOXONE [Concomitant]
     Dosage: 0.05ML, 0.14ML.
     Route: 042
  25. POLYETHYLENE GLYCOL 3350 [Concomitant]
     Dosage: 1DF=17GM/1PACKET.
     Route: 048
     Dates: start: 20120727
  26. SIMETHICONE [Concomitant]
     Dosage: TABS: EVERY 6HRS.
     Route: 048
     Dates: start: 20120725
  27. DEXTROSE [Concomitant]
     Route: 042
  28. HYDROMORPHONE [Concomitant]
  29. SODIUM CHLORIDE [Concomitant]
     Route: 042
     Dates: start: 20120717
  30. LIDOCAINE [Concomitant]
     Route: 023
     Dates: start: 20120715
  31. ATIVAN [Concomitant]
     Dosage: 1DF:1MG/0.5ML; 0.7MG/0.38ML; 1MG/0.5ML.?04AUG2012, 20AUG2012
     Route: 042
     Dates: start: 20120718
  32. MORPHINE [Concomitant]
     Dosage: 1DF:2MG/1ML; 2MG/1ML.
     Route: 042
     Dates: start: 20120716
  33. DIPHENHYDRAMINE [Concomitant]
     Dosage: 1 CAPS; EVERY 6 HRS.?IV 50MG/1ML.15JUL2012.
     Route: 048
  34. COLACE [Concomitant]
     Dosage: 1CAPS.
     Route: 048
     Dates: start: 20120727
  35. ADRENALIN [Concomitant]
     Dosage: 0.3MG/0.3ML.
     Route: 030
     Dates: start: 20120715
  36. HEPARIN FLUSH [Concomitant]
     Dosage: 1DF:30UNITS/3ML.
     Route: 042
  37. HYDROCORTISONE [Concomitant]
     Dosage: 100MG/2ML.
     Route: 042
     Dates: start: 20120719
  38. BACTRIM [Concomitant]
     Dosage: 1DF:125MG/156.25ML.
     Route: 042
  39. SEPTRA [Concomitant]
     Dosage: 1TAB.
     Route: 048
     Dates: start: 20120715

REACTIONS (10)
  - Fungal sepsis [Fatal]
  - Fungaemia [Fatal]
  - Cardiac arrest [Not Recovered/Not Resolved]
  - Generalised oedema [Recovered/Resolved]
  - Large intestinal ulcer [Recovered/Resolved]
  - Encephalopathy [Recovered/Resolved]
  - Bacteraemia [Recovered/Resolved]
  - Sepsis [Not Recovered/Not Resolved]
  - Colitis [Not Recovered/Not Resolved]
  - Left ventricular dysfunction [Not Recovered/Not Resolved]
